FAERS Safety Report 5723158-0 (Version None)
Quarter: 2008Q2

REPORT INFORMATION
  Report Type: 
  Country: None (occurrence: None)
  Receive Date: 20080428
  Receipt Date: 20080414
  Transmission Date: 20081010
  Serious: Yes (Hospitalization)
  Sender: FDA-Public Use
  Company Number: 220070J08USA

PATIENT
  Age: 13 Year
  Sex: Female

DRUGS (1)
  1. SAIZEN [Suspect]
     Indication: GROWTH HORMONE DEFICIENCY
     Dosage: 3 MG, 1 IN 1 DAYS, SUBCUTANEOUS
     Route: 058
     Dates: start: 20080108

REACTIONS (4)
  - DEHYDRATION [None]
  - PYREXIA [None]
  - VIRAL INFECTION [None]
  - VOMITING [None]
